FAERS Safety Report 25691418 (Version 1)
Quarter: 2025Q3

REPORT INFORMATION
  Report Type: Spontaneous
  Country: US (occurrence: US)
  Receive Date: 20250818
  Receipt Date: 20250818
  Transmission Date: 20251021
  Serious: Yes (Other)
  Sender: UNITED THERAPEUTICS
  Company Number: US-UNITED THERAPEUTICS-UNT-2025-028277

PATIENT
  Age: 45 Year
  Sex: Female

DRUGS (15)
  1. REMODULIN [Suspect]
     Active Substance: TREPROSTINIL
     Indication: Pulmonary arterial hypertension
     Route: 041
  2. REMODULIN [Suspect]
     Active Substance: TREPROSTINIL
     Indication: Scleroderma
  3. REMODULIN [Suspect]
     Active Substance: TREPROSTINIL
     Indication: Rheumatoid arthritis
  4. SOTATERCEPT [Suspect]
     Active Substance: SOTATERCEPT
     Indication: Pulmonary arterial hypertension
  5. SOTATERCEPT [Suspect]
     Active Substance: SOTATERCEPT
     Indication: Scleroderma
  6. SOTATERCEPT [Suspect]
     Active Substance: SOTATERCEPT
     Indication: Rheumatoid arthritis
  7. SOTATERCEPT [Suspect]
     Active Substance: SOTATERCEPT
  8. SOTATERCEPT [Suspect]
     Active Substance: SOTATERCEPT
  9. SOTATERCEPT [Suspect]
     Active Substance: SOTATERCEPT
  10. MACITENTAN [Concomitant]
     Active Substance: MACITENTAN
     Indication: Pulmonary arterial hypertension
  11. MACITENTAN [Concomitant]
     Active Substance: MACITENTAN
     Indication: Scleroderma
  12. MACITENTAN [Concomitant]
     Active Substance: MACITENTAN
     Indication: Rheumatoid arthritis
  13. SILDENAFIL [Concomitant]
     Active Substance: SILDENAFIL
     Indication: Pulmonary arterial hypertension
  14. SILDENAFIL [Concomitant]
     Active Substance: SILDENAFIL
     Indication: Scleroderma
  15. SILDENAFIL [Concomitant]
     Active Substance: SILDENAFIL
     Indication: Rheumatoid arthritis

REACTIONS (1)
  - Pericardial effusion [Not Recovered/Not Resolved]
